FAERS Safety Report 10163222 (Version 3)
Quarter: 2014Q2

REPORT INFORMATION
  Report Type: Spontaneous
  Country: US (occurrence: US)
  Receive Date: 20140509
  Receipt Date: 20140529
  Transmission Date: 20141212
  Serious: Yes (Hospitalization, Other)
  Sender: FDA-Public Use
  Company Number: US-GILEAD-2014-0101681

PATIENT
  Age: 61 Year
  Sex: Male
  Weight: 82.99 kg

DRUGS (5)
  1. SOVALDI [Suspect]
     Indication: HEPATITIS C
     Dosage: UNK
     Route: 065
     Dates: start: 20140129
  2. SIMEPREVIR [Suspect]
     Indication: HEPATITIS C
     Dosage: 150 MG, QD
     Route: 048
     Dates: start: 20140129, end: 20140211
  3. WARFARIN [Suspect]
     Indication: THROMBOSIS
     Dosage: UNK
     Route: 065
     Dates: start: 2008
  4. BYSTOLIC [Concomitant]
     Indication: HYPERTENSION
     Dosage: 5 MG, QD
     Route: 048
     Dates: start: 2011
  5. FOSINOPRIL [Concomitant]
     Indication: HYPERTENSION

REACTIONS (4)
  - Colitis [Unknown]
  - Haemorrhage [Recovered/Resolved]
  - Weight decreased [Not Recovered/Not Resolved]
  - Off label use [Recovered/Resolved]
